FAERS Safety Report 9515391 (Version 1)
Quarter: 2013Q1

REPORT INFORMATION
  Report Type: Spontaneous
  Country: US (occurrence: None)
  Receive Date: 20130305
  Receipt Date: 20130305
  Transmission Date: 20140127
  Serious: Yes (Other)
  Sender: FDA-Public Use
  Company Number: 163-21880-12042920

PATIENT
  Age: 80 Year
  Sex: Male

DRUGS (1)
  1. REVLIMID [Suspect]
     Indication: PLASMA CELL MYELOMA
     Dosage: 5 MG, Q MON,WED,FRI. AND SUN, PO
     Route: 048
     Dates: start: 20120306

REACTIONS (3)
  - Platelet count decreased [None]
  - Contusion [None]
  - Fatigue [None]
